FAERS Safety Report 22536352 (Version 4)
Quarter: 2024Q1

REPORT INFORMATION
  Report Type: Spontaneous
  Country: US (occurrence: US)
  Receive Date: 20230608
  Receipt Date: 20240213
  Transmission Date: 20240410
  Serious: Yes (Other)
  Sender: FDA-Public Use
  Company Number: US-BIOVITRUM-2023-US-011680

PATIENT
  Age: 62 Year
  Sex: Male

DRUGS (3)
  1. DOPTELET [Suspect]
     Active Substance: AVATROMBOPAG MALEATE
     Indication: Thrombocytopenia
     Dosage: DAILY WITH FOOD
     Route: 048
     Dates: start: 20230608
  2. DOPTELET [Suspect]
     Active Substance: AVATROMBOPAG MALEATE
     Dosage: 15 MG EVERY MONDAY, WEDNESDAY, FRIDAY ORALLY
     Route: 048
     Dates: start: 20230608
  3. DOPTELET [Suspect]
     Active Substance: AVATROMBOPAG MALEATE
     Dosage: 10 MG PO EVERY MONDAY
     Route: 048
     Dates: start: 20230608

REACTIONS (5)
  - Diabetes mellitus [Unknown]
  - Hypertension [Unknown]
  - Blood cholesterol increased [Unknown]
  - Injection site bruising [Recovered/Resolved]
  - Platelet count abnormal [Recovered/Resolved]
